FAERS Safety Report 8219979-5 (Version None)
Quarter: 2012Q1

REPORT INFORMATION
  Report Type: 
  Country: None (occurrence: None)
  Receive Date: 20120319
  Receipt Date: 20120312
  Transmission Date: 20120608
  Serious: Yes (Hospitalization)
  Sender: FDA-Public Use
  Company Number: ES-B.I. PHARMACEUTICALS,INC./RIDGEFIELD-2012-ES-00102ES

PATIENT
  Age: 44 Year
  Sex: Female

DRUGS (8)
  1. FLECAINIDE ACETATE [Suspect]
     Dosage: 100 MG
     Route: 048
     Dates: start: 20110601
  2. CITICOLINA [Suspect]
     Dosage: 1 G
     Dates: start: 20111001, end: 20111204
  3. VESICARE [Suspect]
     Dosage: 5 MG
     Route: 048
     Dates: start: 20111001, end: 20111204
  4. PRADAXA [Suspect]
     Indication: CEREBROVASCULAR ACCIDENT
     Dosage: 220 MG
     Route: 048
     Dates: start: 20111011, end: 20111204
  5. CLOPIDOGREL [Suspect]
     Dosage: 75 MG
     Route: 048
     Dates: start: 20110601, end: 20111204
  6. KEPPRA [Suspect]
     Indication: CONVULSION
     Dosage: 3000 MG
     Route: 048
     Dates: start: 20110601
  7. RANITIDINE HCL [Suspect]
     Dosage: 150 MG
     Dates: start: 20110601
  8. PAROXETINE HCL [Suspect]
     Dosage: 20 MG
     Route: 048
     Dates: start: 20110601, end: 20111204

REACTIONS (2)
  - HEPATITIS [None]
  - DRUG INTERACTION [None]
